FAERS Safety Report 10247398 (Version 2)
Quarter: 2015Q3

REPORT INFORMATION
  Report Type: Spontaneous
  Country: US (occurrence: US)
  Receive Date: 20140619
  Receipt Date: 20150717
  Transmission Date: 20151125
  Serious: Yes (Other)
  Sender: FDA-Public Use
  Company Number: US-SA-2014SA078126

PATIENT
  Age: 70 Year
  Sex: Female

DRUGS (5)
  1. PLAVIX [Suspect]
     Active Substance: CLOPIDOGREL BISULFATE
     Indication: CEREBROVASCULAR ACCIDENT
     Dosage: 5 TIMES PER DAY
     Route: 048
     Dates: end: 200908
  2. PLAVIX [Suspect]
     Active Substance: CLOPIDOGREL BISULFATE
     Indication: CEREBROVASCULAR ACCIDENT
     Dosage: 5 TIMES PER DAY
     Route: 048
     Dates: start: 200302
  3. PLAVIX [Suspect]
     Active Substance: CLOPIDOGREL BISULFATE
     Indication: STENT PLACEMENT
     Dosage: 5 TIMES PER DAY
     Route: 048
     Dates: end: 200908
  4. PLAVIX [Suspect]
     Active Substance: CLOPIDOGREL BISULFATE
     Indication: STENT PLACEMENT
     Dosage: 5 TIMES PER DAY
     Route: 048
     Dates: start: 200302
  5. ASPIRIN. [Suspect]
     Active Substance: ASPIRIN
     Route: 065

REACTIONS (3)
  - Overdose [Unknown]
  - Gastrointestinal haemorrhage [Recovered/Resolved]
  - Multiple injuries [Unknown]

NARRATIVE: CASE EVENT DATE: 200302
